FAERS Safety Report 17547696 (Version 1)
Quarter: 2020Q1

REPORT INFORMATION
  Report Type: Spontaneous
  Country: DE (occurrence: DE)
  Receive Date: 20200316
  Receipt Date: 20200316
  Transmission Date: 20200409
  Serious: Yes (Death, Hospitalization)
  Sender: FDA-Public Use
  Company Number: NVSC2020DE039397

PATIENT
  Age: 44 Year
  Sex: Female
  Weight: 65 kg

DRUGS (33)
  1. TAFINLAR [Suspect]
     Active Substance: DABRAFENIB MESYLATE
     Indication: METASTATIC MALIGNANT MELANOMA
     Dosage: 150 MG, BID
     Route: 048
     Dates: start: 20161019, end: 20161114
  2. TRAMETINIB [Suspect]
     Active Substance: TRAMETINIB
     Dosage: 2 MG, QD
     Route: 048
     Dates: start: 20161123, end: 20180513
  3. DEXAMETHASONE. [Concomitant]
     Active Substance: DEXAMETHASONE
     Indication: MALIGNANT MELANOMA
     Dosage: 4 MG, QD
     Route: 048
     Dates: start: 20170829, end: 20171128
  4. PREGABALIN. [Concomitant]
     Active Substance: PREGABALIN
     Indication: PRODUCT USED FOR UNKNOWN INDICATION
     Dosage: 100 MG, QD
     Route: 048
     Dates: start: 20180225
  5. ABSTRAL [Concomitant]
     Active Substance: FENTANYL CITRATE
     Indication: PRODUCT USED FOR UNKNOWN INDICATION
     Dosage: 200 UG, QID
     Route: 048
     Dates: start: 20180516
  6. IPILIMUMAB [Concomitant]
     Active Substance: IPILIMUMAB
     Indication: MALIGNANT MELANOMA
     Dosage: 3 MG/KG, Q3W
     Route: 042
     Dates: start: 20181024, end: 20181024
  7. TILIDINE [Concomitant]
     Active Substance: TILIDINE
     Indication: PRODUCT USED FOR UNKNOWN INDICATION
     Dosage: 50 MG, PRN
     Route: 048
     Dates: start: 20161115, end: 20170406
  8. IBUPROFEN. [Concomitant]
     Active Substance: IBUPROFEN
     Indication: MALIGNANT MELANOMA
     Dosage: 600 MG, QD
     Route: 048
     Dates: start: 20170214, end: 20170406
  9. CIPRALEX [Concomitant]
     Active Substance: ESCITALOPRAM OXALATE
     Indication: DEPRESSED MOOD
     Dosage: 10 MG, QD
     Route: 048
     Dates: start: 20170518, end: 20180228
  10. PANTOPRAZOLE [Concomitant]
     Active Substance: PANTOPRAZOLE
     Indication: MALIGNANT MELANOMA
     Dosage: 40 MG, QD
     Route: 048
     Dates: start: 20170829
  11. BIFITERAL [Concomitant]
     Active Substance: LACTULOSE
     Indication: PRODUCT USED FOR UNKNOWN INDICATION
     Dosage: 10 G, QD
     Route: 048
     Dates: start: 20180225, end: 20180225
  12. LAXANS [Concomitant]
     Indication: PRODUCT USED FOR UNKNOWN INDICATION
     Dosage: 15 DRP, QD
     Route: 065
     Dates: start: 20180225, end: 20180303
  13. TAFINLAR [Suspect]
     Active Substance: DABRAFENIB MESYLATE
     Dosage: 150 MG, BID
     Route: 048
     Dates: start: 20161117, end: 20180513
  14. TRAMETINIB [Suspect]
     Active Substance: TRAMETINIB
     Indication: METASTATIC MALIGNANT MELANOMA
     Dosage: 2 MG, QD
     Route: 048
     Dates: start: 20161019, end: 20161114
  15. CLEXANE [Concomitant]
     Active Substance: ENOXAPARIN SODIUM
     Indication: PRODUCT USED FOR UNKNOWN INDICATION
     Dosage: 40 MG, QD
     Route: 058
     Dates: start: 20180226, end: 20180303
  16. MOVICOL [Concomitant]
     Active Substance: POLYETHYLENE GLYCOL 3350\POTASSIUM CHLORIDE\SODIUM BICARBONATE\SODIUM CHLORIDE
     Indication: PRODUCT USED FOR UNKNOWN INDICATION
     Dosage: 13.81 G, QD
     Route: 048
     Dates: start: 20170829, end: 20171128
  17. NIVOLUMAB [Concomitant]
     Active Substance: NIVOLUMAB
     Indication: MALIGNANT MELANOMA
     Dosage: 1 MG/KG, Q3W
     Route: 042
     Dates: start: 20181024, end: 20181024
  18. NOVAMINOSULFON [Concomitant]
     Active Substance: METAMIZOLE SODIUM
     Indication: ABDOMINAL PAIN
     Dosage: UNK
     Route: 065
  19. HYDROMORPHONE HYDROCHLORIDE. [Suspect]
     Active Substance: HYDROMORPHONE HYDROCHLORIDE
     Indication: PAIN
     Dosage: 4 MG, BID
     Route: 048
     Dates: start: 20170407, end: 20170706
  20. HYDROMORPHONE HYDROCHLORIDE. [Suspect]
     Active Substance: HYDROMORPHONE HYDROCHLORIDE
     Dosage: 8 MG, QD
     Route: 048
     Dates: start: 20180225, end: 20180225
  21. LAXOBERAL [Concomitant]
     Active Substance: SODIUM PICOSULFATE
     Indication: MALIGNANT MELANOMA
     Dosage: 20 GTT, QD
     Route: 048
     Dates: start: 20170407, end: 20180225
  22. PEMBROLIZUMAB. [Concomitant]
     Active Substance: PEMBROLIZUMAB
     Indication: PRODUCT USED FOR UNKNOWN INDICATION
     Dosage: 2 MG/KG, QD
     Route: 048
     Dates: start: 20180517, end: 20181002
  23. HYDROMORPHONE HYDROCHLORIDE. [Suspect]
     Active Substance: HYDROMORPHONE HYDROCHLORIDE
     Dosage: 4 MG, TID
     Route: 048
     Dates: start: 20180516
  24. ZOFRAN [Concomitant]
     Active Substance: ONDANSETRON HYDROCHLORIDE
     Indication: MALIGNANT MELANOMA
     Dosage: 8 MG, BID
     Route: 048
     Dates: start: 20161115, end: 20170307
  25. PALLADON [Concomitant]
     Active Substance: HYDROMORPHONE
     Indication: MALIGNANT MELANOMA
     Dosage: 1.3 MG, PRN
     Route: 048
     Dates: start: 20170407
  26. ORTOTON [Concomitant]
     Indication: PRODUCT USED FOR UNKNOWN INDICATION
     Dosage: 750 MG
     Route: 048
     Dates: start: 20180516
  27. MCP [Concomitant]
     Active Substance: METOCLOPRAMIDE HYDROCHLORIDE
     Indication: MALIGNANT MELANOMA
     Dosage: 10 MG, TID
     Route: 048
     Dates: start: 20170118
  28. PREGABA [Concomitant]
     Active Substance: PREGABALIN
     Indication: DEPRESSED MOOD
     Dosage: 75 MG, QD
     Route: 048
     Dates: start: 20170829, end: 20170905
  29. NOVAMINOSULFON [Concomitant]
     Active Substance: METAMIZOLE SODIUM
     Indication: MALIGNANT MELANOMA
     Dosage: 50 MG, PRN
     Route: 048
     Dates: start: 20161115, end: 20170406
  30. HYDROMORPHONE HYDROCHLORIDE. [Suspect]
     Active Substance: HYDROMORPHONE HYDROCHLORIDE
     Indication: MALIGNANT MELANOMA
     Dosage: 4 MG, TID
     Route: 048
     Dates: start: 20170707, end: 20180224
  31. HYDROMORPHONE HYDROCHLORIDE. [Suspect]
     Active Substance: HYDROMORPHONE HYDROCHLORIDE
     Dosage: 8 MG, TID
     Route: 048
     Dates: start: 20180226
  32. CELEBREX [Concomitant]
     Active Substance: CELECOXIB
     Indication: PRODUCT USED FOR UNKNOWN INDICATION
     Dosage: 400 MG, QD
     Route: 048
     Dates: start: 20180302
  33. MQF [Concomitant]
     Indication: MALIGNANT MELANOMA
     Dosage: 10 MG, TID
     Route: 065
     Dates: start: 20180228, end: 20180303

REACTIONS (5)
  - Metastatic malignant melanoma [Fatal]
  - Constipation [Unknown]
  - Intracranial pressure increased [Recovered/Resolved]
  - Malignant neoplasm progression [Fatal]
  - Abdominal pain [Recovered/Resolved]

NARRATIVE: CASE EVENT DATE: 20170829
